FAERS Safety Report 9260937 (Version 1)
Quarter: 2013Q2

REPORT INFORMATION
  Report Type: Spontaneous
  Country: US (occurrence: US)
  Receive Date: 20130429
  Receipt Date: 20130429
  Transmission Date: 20140414
  Serious: No
  Sender: FDA-Public Use
  Company Number: US-AMGEN-USASP2012051090

PATIENT
  Sex: 0

DRUGS (3)
  1. SENSIPAR [Suspect]
     Indication: HYPERPARATHYROIDISM SECONDARY
     Dosage: UNK
  2. SENSIPAR [Suspect]
     Indication: DIALYSIS
  3. REGLAN                             /00041901/ [Concomitant]
     Dosage: UNK

REACTIONS (1)
  - Drug interaction [Unknown]
